FAERS Safety Report 23970105 (Version 2)
Quarter: 2024Q2

REPORT INFORMATION
  Report Type: Spontaneous
  Country: CN (occurrence: CN)
  Receive Date: 20240613
  Receipt Date: 20240614
  Transmission Date: 20240715
  Serious: Yes (Death, Hospitalization, Other)
  Sender: FDA-Public Use
  Company Number: CN-CSTONE PHARMACEUTICALS (SUZHOU) CO., LTD.-2024CN00635

PATIENT

DRUGS (2)
  1. GAVRETO [Suspect]
     Active Substance: PRALSETINIB
     Indication: Lung adenocarcinoma stage IV
     Dosage: 400 MILLIGRAM, QD
     Route: 048
     Dates: start: 20210915
  2. DOPAMINE HYDROCHLORIDE [Concomitant]
     Active Substance: DOPAMINE HYDROCHLORIDE
     Indication: Blood pressure immeasurable
     Dosage: UNK
     Dates: start: 20211027

REACTIONS (20)
  - Death [Fatal]
  - Myelosuppression [Unknown]
  - Agranulocytosis [Unknown]
  - Hyperhidrosis [Unknown]
  - Chills [Unknown]
  - Cardiac arrest [Unknown]
  - Mental disorder [Unknown]
  - Pneumonia [Unknown]
  - Vomiting [Unknown]
  - Asthenia [Unknown]
  - Urine output decreased [Unknown]
  - Aphasia [Unknown]
  - Chest discomfort [Unknown]
  - Heart rate decreased [Unknown]
  - Blood pressure immeasurable [Unknown]
  - Oxygen saturation decreased [Unknown]
  - Sinus tachycardia [Unknown]
  - Electrocardiogram ST segment abnormal [Unknown]
  - Haemoptysis [Unknown]
  - Decreased appetite [Unknown]

NARRATIVE: CASE EVENT DATE: 20211026
